FAERS Safety Report 7578425-5 (Version None)
Quarter: 2011Q2

REPORT INFORMATION
  Report Type: 
  Country: None (occurrence: None)
  Receive Date: 20110622
  Receipt Date: 20110609
  Transmission Date: 20111010
  Serious: Yes (Other)
  Sender: FDA-Public Use
  Company Number: US-2011-10379

PATIENT
  Age: 59 Year
  Sex: Female

DRUGS (3)
  1. CYCLOSPORINE [Concomitant]
  2. BUSULFEX [Suspect]
     Indication: STEM CELL TRANSPLANT
     Dosage: 6.4 MG/KG, DAILY DOSE, INTRAVENOUS
     Route: 042
     Dates: start: 20070401
  3. MELPHALAN HYDROCHLORIDE [Suspect]
     Indication: STEM CELL TRANSPLANT
     Dosage: 160 MG/M2
     Dates: start: 20070401

REACTIONS (2)
  - RENAL FAILURE [None]
  - ACUTE GRAFT VERSUS HOST DISEASE IN INTESTINE [None]
